FAERS Safety Report 12427965 (Version 1)
Quarter: 2016Q2

REPORT INFORMATION
  Report Type: Other
  Country: GB (occurrence: GB)
  Receive Date: 20160602
  Receipt Date: 20160602
  Transmission Date: 20160815
  Serious: Yes (Disabling)
  Sender: FDA-Public Use
  Company Number: GB-LUPIN PHARMACEUTICALS INC.-E2B_00005501

PATIENT
  Age: 77 Year
  Sex: Female

DRUGS (1)
  1. SERTRALINE [Suspect]
     Active Substance: SERTRALINE HYDROCHLORIDE
     Indication: PRODUCT USED FOR UNKNOWN INDICATION
     Route: 065
     Dates: start: 201506

REACTIONS (5)
  - Eyelid ptosis [Unknown]
  - Mobility decreased [Unknown]
  - Dry mouth [Unknown]
  - Bone pain [Unknown]
  - Wheezing [Unknown]

NARRATIVE: CASE EVENT DATE: 201512
